FAERS Safety Report 10232947 (Version 1)
Quarter: 2014Q2

REPORT INFORMATION
  Report Type: Spontaneous
  Country: US (occurrence: None)
  Receive Date: 20140610
  Receipt Date: 20140610
  Transmission Date: 20141212
  Serious: Yes (Hospitalization)
  Sender: FDA-Public Use
  Company Number: 20140306

PATIENT
  Age: 30 Year
  Sex: Female
  Weight: 50.3 kg

DRUGS (2)
  1. VENOFER (IRON SUCROSE INJECTION, USP) (2430-10) 20 MG/ML [Suspect]
     Indication: IRON DEFICIENCY ANAEMIA
     Route: 042
     Dates: start: 20140324, end: 20140324
  2. ACETAMINOPHEN [Concomitant]

REACTIONS (9)
  - Off label use [None]
  - Incorrect drug administration rate [None]
  - Muscle spasms [None]
  - Dysgeusia [None]
  - Dizziness [None]
  - Paraesthesia [None]
  - Loss of consciousness [None]
  - Throat tightness [None]
  - Anaphylactoid reaction [None]
